FAERS Safety Report 18997409 (Version 1)
Quarter: 2021Q1

REPORT INFORMATION
  Report Type: Spontaneous
  Country: DE (occurrence: DE)
  Receive Date: 20210311
  Receipt Date: 20210311
  Transmission Date: 20210420
  Serious: Yes (Other)
  Sender: FDA-Public Use
  Company Number: DE-ACCORD-219282

PATIENT
  Age: 91 Year
  Sex: Female

DRUGS (7)
  1. OLMESARTAN MEDOXOMIL ACCORD [Suspect]
     Active Substance: OLMESARTAN MEDOXOMIL
     Indication: PRODUCT USED FOR UNKNOWN INDICATION
     Dosage: STRENGTH: 20 MG, 1X1
  2. VALSARTAN ? 1 A PHARMA [Suspect]
     Active Substance: VALSARTAN
     Indication: PRODUCT USED FOR UNKNOWN INDICATION
     Dosage: 1X1, STRENGTH: 80 MG / 12.5 MG
  3. HCT DEXCEL [Suspect]
     Active Substance: HYDROCHLOROTHIAZIDE
     Indication: PRODUCT USED FOR UNKNOWN INDICATION
     Dosage: 2X 1/2, STRENGTH: 12.5 MG
  4. HYDROCHLOROTHIAZIDE/VALSARTAN [Suspect]
     Active Substance: HYDROCHLOROTHIAZIDE\VALSARTAN
     Indication: PRODUCT USED FOR UNKNOWN INDICATION
     Dosage: 1X1, STRENGTH: 80 MG / 12.5 MG
  5. RAMILICH [Suspect]
     Active Substance: RAMIPRIL
     Indication: PRODUCT USED FOR UNKNOWN INDICATION
     Dosage: 2X1, STRENGTH: 5 MG
  6. VALSARTAN DURA [Suspect]
     Active Substance: VALSARTAN
     Indication: PRODUCT USED FOR UNKNOWN INDICATION
     Dosage: 2X1/2, STRENGTH: 80 MG
  7. VALSACOR [Suspect]
     Active Substance: VALSARTAN
     Indication: PRODUCT USED FOR UNKNOWN INDICATION
     Dosage: 1X1, STRENGTH: 80 MG / 12.5 MG

REACTIONS (6)
  - Drug intolerance [Unknown]
  - Panic reaction [Unknown]
  - Myalgia [Unknown]
  - Bone pain [Unknown]
  - Blood pressure increased [Unknown]
  - Dysuria [Unknown]
